FAERS Safety Report 7900672-0 (Version None)
Quarter: 2011Q4

REPORT INFORMATION
  Report Type: 
  Country: None (occurrence: None)
  Receive Date: 20111108
  Receipt Date: 20111101
  Transmission Date: 20120403
  Serious: No
  Sender: FDA-Public Use
  Company Number: US-PFIZER INC-2011268482

PATIENT

DRUGS (3)
  1. XANAX XR [Suspect]
     Dosage: 2 MG, UNK
     Dates: start: 20110101, end: 20110101
  2. XANAX [Suspect]
     Dosage: UNK
     Dates: start: 20090101, end: 20110101
  3. XANAX [Suspect]
     Dosage: 0.25 MG, UNK
     Dates: start: 20110101

REACTIONS (1)
  - FEELING ABNORMAL [None]
